FAERS Safety Report 8388960-8 (Version None)
Quarter: 2012Q2

REPORT INFORMATION
  Report Type: 
  Country: None (occurrence: None)
  Receive Date: 20120528
  Receipt Date: 20120514
  Transmission Date: 20120825
  Serious: Yes (Death, Other)
  Sender: FDA-Public Use
  Company Number: ES-RANBAXY-2012RR-55090

PATIENT
  Age: 23 Year
  Sex: Female

DRUGS (2)
  1. AMOXICILLIN AND CLAVULANATE POTASSIUM [Suspect]
     Indication: PYELONEPHRITIS ACUTE
     Dosage: UNK
     Route: 065
  2. NOLOTIL [Suspect]
     Indication: PYELONEPHRITIS ACUTE
     Dosage: 2 G, TID
     Route: 042

REACTIONS (4)
  - SYNCOPE [None]
  - OLIGOHYDRAMNIOS [None]
  - PREMATURE DELIVERY [None]
  - MATERNAL EXPOSURE DURING PREGNANCY [None]
